FAERS Safety Report 7915554-8 (Version None)
Quarter: 2011Q4

REPORT INFORMATION
  Report Type: 
  Country: None (occurrence: None)
  Receive Date: 20111115
  Receipt Date: 20110817
  Transmission Date: 20120403
  Serious: No
  Sender: FDA-Public Use
  Company Number: US-BRISTOL-MYERS SQUIBB COMPANY-15980097

PATIENT
  Age: 60 Year
  Sex: Male

DRUGS (2)
  1. YERVOY [Suspect]
     Dates: start: 20110720
  2. PROCHLORPERAZINE [Concomitant]
     Dosage: FORMU: TAB

REACTIONS (3)
  - DIARRHOEA [None]
  - RASH [None]
  - NAUSEA [None]
